FAERS Safety Report 13335386 (Version 2)
Quarter: 2018Q1

REPORT INFORMATION
  Report Type: Spontaneous
  Country: US (occurrence: US)
  Receive Date: 20170314
  Receipt Date: 20180307
  Transmission Date: 20180508
  Serious: No
  Sender: FDA-Public Use
  Company Number: US-GALDERMA-US16006537

PATIENT
  Sex: Female

DRUGS (1)
  1. TRI-LUMA [Suspect]
     Active Substance: FLUOCINOLONE ACETONIDE\HYDROQUINONE\TRETINOIN
     Indication: CHLOASMA
     Route: 061

REACTIONS (1)
  - Exposure during pregnancy [Unknown]
